FAERS Safety Report 22667976 (Version 6)
Quarter: 2024Q1

REPORT INFORMATION
  Report Type: Report from Study
  Country: US (occurrence: US)
  Receive Date: 20230704
  Receipt Date: 20240328
  Transmission Date: 20240410
  Serious: No
  Sender: FDA-Public Use
  Company Number: US-DECIPHERA PHARMACEUTICALS LLC-2023US000594

PATIENT
  Age: 80 Year
  Sex: Female

DRUGS (4)
  1. QINLOCK [Suspect]
     Active Substance: RIPRETINIB
     Indication: Gastrointestinal stromal tumour
     Dosage: 100 MILLIGRAM, QD
     Route: 048
     Dates: start: 20211006
  2. QINLOCK [Suspect]
     Active Substance: RIPRETINIB
     Dosage: 100 MILLIGRAM, QCD
     Route: 048
  3. QINLOCK [Suspect]
     Active Substance: RIPRETINIB
     Dosage: 150 MILLIGRAM, QD (3 TABLETS ON MONDAY, WEDNESDAY, FRIDAY AND 2 TABLETS ON THE OTHER DAYS), 4 DAYS A
     Route: 048
     Dates: start: 2023
  4. QINLOCK [Suspect]
     Active Substance: RIPRETINIB
     Dosage: 100 MILLIGRAM, QD (3 TABLETS ON MONDAY, WEDNESDAY, FRIDAY AND 2 TABLETS ON THE OTHER DAYS), 3 DAYS A
     Route: 048
     Dates: start: 2023

REACTIONS (4)
  - Skin exfoliation [Recovering/Resolving]
  - Neuropathy peripheral [Unknown]
  - Incorrect dose administered [Unknown]
  - Inappropriate schedule of product administration [Unknown]
